FAERS Safety Report 4490455-9 (Version None)
Quarter: 2004Q4

REPORT INFORMATION
  Report Type: 
  Country: None (occurrence: None)
  Receive Date: 20041102
  Receipt Date: 20041020
  Transmission Date: 20050328
  Serious: Yes (Other)
  Sender: FDA-Public Use
  Company Number: PHNU2004DE03601

PATIENT
  Age: 65 Year
  Sex: Male

DRUGS (3)
  1. CERTICAN [Suspect]
     Dosage: .75 MG, BID
     Dates: start: 20040925
  2. SANDIMMUNE [Suspect]
  3. ZOCOR [Suspect]
     Dosage: 10 MG/DAY

REACTIONS (8)
  - ABDOMINAL PAIN UPPER [None]
  - ASTHENIA [None]
  - BLOOD CREATINE PHOSPHOKINASE INCREASED [None]
  - DIARRHOEA [None]
  - HEADACHE [None]
  - MYALGIA [None]
  - NAUSEA [None]
  - VOMITING [None]
